FAERS Safety Report 12137139 (Version 1)
Quarter: 2016Q1

REPORT INFORMATION
  Report Type: Spontaneous
  Country: CA (occurrence: CA)
  Receive Date: 20160302
  Receipt Date: 20160302
  Transmission Date: 20160526
  Serious: Yes (Life-Threatening, Hospitalization)
  Sender: FDA-Public Use
  Company Number: CA-TEVA-639657ACC

PATIENT
  Age: 54 Year
  Sex: Female
  Weight: 78 kg

DRUGS (8)
  1. OXAZEPAM. [Concomitant]
     Active Substance: OXAZEPAM
  2. CALCIUM [Concomitant]
     Active Substance: CALCIUM
  3. PANTOLOC [Concomitant]
     Active Substance: PANTOPRAZOLE SODIUM
  4. VITAMIN D [Concomitant]
     Active Substance: CHOLECALCIFEROL
  5. EFFEXOR XR [Concomitant]
     Active Substance: VENLAFAXINE HYDROCHLORIDE
  6. TAMOXIFEN [Suspect]
     Active Substance: TAMOXIFEN
     Indication: BREAST CANCER RECURRENT
  7. PRAMIPEXOLE. [Concomitant]
     Active Substance: PRAMIPEXOLE
  8. TAMOXIFEN [Suspect]
     Active Substance: TAMOXIFEN
     Indication: PROPHYLAXIS
     Dosage: 20 MILLIGRAM DAILY;
     Route: 048

REACTIONS (2)
  - Dilatation ventricular [Unknown]
  - Pulmonary embolism [Unknown]
